FAERS Safety Report 6037279-9 (Version None)
Quarter: 2009Q1

REPORT INFORMATION
  Report Type: 
  Country: None (occurrence: None)
  Receive Date: 20090114
  Receipt Date: 20090109
  Transmission Date: 20090719
  Serious: Yes (Hospitalization)
  Sender: FDA-Public Use
  Company Number: B0550213A

PATIENT
  Age: 74 Year
  Sex: Female
  Weight: 72 kg

DRUGS (7)
  1. LAMICTAL [Suspect]
     Indication: EPILEPSY
     Dosage: 10MG PER DAY
     Route: 048
     Dates: start: 20081118, end: 20081201
  2. DEPAKENE [Concomitant]
     Indication: EPILEPSY
     Route: 048
     Dates: end: 20081207
  3. KEPPRA [Concomitant]
     Indication: EPILEPSY
     Dosage: 500MG PER DAY
     Route: 048
  4. CONCOR [Concomitant]
     Indication: DRUG USE FOR UNKNOWN INDICATION
     Dosage: 5MG PER DAY
     Route: 048
  5. FLUDEX [Concomitant]
     Indication: HYPERTENSION
     Dosage: 1.5MG PER DAY
     Route: 048
  6. PLAVIX [Concomitant]
     Indication: DRUG USE FOR UNKNOWN INDICATION
     Route: 065
  7. PRAVASTATIN [Concomitant]
     Indication: DRUG USE FOR UNKNOWN INDICATION
     Dosage: 20MG PER DAY
     Route: 048

REACTIONS (8)
  - C-REACTIVE PROTEIN INCREASED [None]
  - DRUG RASH WITH EOSINOPHILIA AND SYSTEMIC SYMPTOMS [None]
  - DYSPHAGIA [None]
  - LIVER DISORDER [None]
  - PYREXIA [None]
  - RASH [None]
  - SEPSIS [None]
  - URTICARIA [None]
